FAERS Safety Report 5997219-5 (Version None)
Quarter: 2008Q4

REPORT INFORMATION
  Report Type: 
  Country: None (occurrence: None)
  Receive Date: 20081212
  Receipt Date: 20081105
  Transmission Date: 20090506
  Serious: No
  Sender: FDA-Public Use
  Company Number: US-ABBOTT-08P-163-0486084-00

PATIENT
  Sex: Female

DRUGS (4)
  1. HUMIRA [Suspect]
     Indication: RHEUMATOID ARTHRITIS
     Route: 058
     Dates: start: 20081102
  2. UNNAMED ANTIDEPRESSANT [Concomitant]
     Indication: ANXIETY
  3. UNNAMED ANTIDEPRESSANT [Concomitant]
     Indication: MENOPAUSE
  4. UNNAMED ANTI-INFLAMMATORY [Concomitant]
     Indication: RHEUMATOID ARTHRITIS

REACTIONS (1)
  - INCORRECT DOSE ADMINISTERED [None]
